FAERS Safety Report 11240403 (Version 1)
Quarter: 2015Q3

REPORT INFORMATION
  Report Type: Spontaneous
  Country: GB (occurrence: GB)
  Receive Date: 20150706
  Receipt Date: 20150706
  Transmission Date: 20151125
  Serious: Yes (Other)
  Sender: FDA-Public Use
  Company Number: GB-PFIZER INC-2015215898

PATIENT
  Age: 72 Year
  Sex: Female
  Weight: 93 kg

DRUGS (10)
  1. LEVOTHYROXINE. [Concomitant]
     Active Substance: LEVOTHYROXINE
     Dosage: 1 DF, 1X/DAY EACH MORNING
     Dates: start: 20140401
  2. LOSARTAN. [Concomitant]
     Active Substance: LOSARTAN
     Dosage: 1 DF, 1X/DAY
     Dates: start: 20140127
  3. MONOMIL [Concomitant]
     Dosage: 1.5 DF, 1X/DAY IN THE MORNING
     Dates: start: 20140127
  4. PARACETAMOL [Concomitant]
     Active Substance: ACETAMINOPHEN
     Dosage: 2 DF, FOUR TIME A DAY AS NEEDED
     Dates: start: 20140127, end: 20150409
  5. NITROLINGUAL [Concomitant]
     Active Substance: NITROGLYCERIN
     Dosage: 1 PUFF AS NEEDED
     Dates: start: 20140127, end: 20150409
  6. OTOMIZE [Concomitant]
     Active Substance: DEXAMETHASONE\NEOMYCIN SULFATE
     Dosage: 1 GTT, 3X/DAY
     Dates: start: 20150602, end: 20150609
  7. ATORVASTATIN [Suspect]
     Active Substance: ATORVASTATIN
     Dosage: UNK
     Dates: start: 20140519
  8. METFORMIN [Concomitant]
     Active Substance: METFORMIN HYDROCHLORIDE
     Dosage: 1 DF, 1X/DAY WITH BREAKFAST
     Dates: start: 20140609
  9. ASPIRIN. [Concomitant]
     Active Substance: ASPIRIN
     Dosage: 1 DF, 1X/DAY
     Dates: start: 20140127
  10. BISOPROLOL [Concomitant]
     Active Substance: BISOPROLOL
     Dosage: 1 DF, 1X/DAY
     Dates: start: 20140127

REACTIONS (3)
  - Pain [Unknown]
  - Blood creatine phosphokinase increased [Unknown]
  - Back pain [Unknown]

NARRATIVE: CASE EVENT DATE: 20150616
